FAERS Safety Report 9343666 (Version 2)
Quarter: 2013Q2

REPORT INFORMATION
  Report Type: Spontaneous
  Country: GB (occurrence: None)
  Receive Date: 20130610
  Receipt Date: 20130620
  Transmission Date: 20140414
  Serious: Yes (Other)
  Sender: FDA-Public Use
  Company Number: AUR-APL-2013-04529

PATIENT
  Age: 74 Year
  Sex: Female
  Weight: 58.51 kg

DRUGS (15)
  1. PRAVASTATIN [Suspect]
     Indication: HYPERCHOLESTEROLAEMIA
     Route: 048
  2. PRAVASTATIN [Suspect]
     Indication: CEREBROVASCULAR ACCIDENT
     Route: 048
  3. SIMVASTATIN (SIMVASTATIN) [Suspect]
     Indication: HYPERCHOLESTEROLAEMIA
     Dosage: STOPPED
     Route: 048
  4. SIMVASTATIN (SIMVASTATIN) [Suspect]
     Indication: CEREBROVASCULAR ACCIDENT
     Dosage: STOPPED
     Route: 048
  5. ATORVASTATIN (ATORVASTATIN) [Suspect]
     Indication: HYPERCHOLESTEROLAEMIA
     Route: 048
  6. ATORVASTATIN (ATORVASTATIN) [Suspect]
     Indication: CEREBROVASCULAR ACCIDENT
     Route: 048
  7. BEZAFIBRATE [Suspect]
     Indication: HYPERCHOLESTEROLAEMIA
     Route: 048
  8. BEZAFIBRATE [Suspect]
     Indication: CEREBROVASCULAR ACCIDENT
     Route: 048
  9. LIPITOR (ATORVASTATIN CALCIUM) [Suspect]
     Indication: HYPERCHOLESTEROLAEMIA
     Route: 048
  10. LIPITOR (ATORVASTATIN CALCIUM) [Suspect]
     Indication: CEREBROVASCULAR ACCIDENT
     Route: 048
  11. BENDROFLUMETHIAZIDE (BENDROFLUMETHIAZIDE) [Concomitant]
  12. BISOPROLOL FUMARATE (BISOPROLOL FUMARATE) [Concomitant]
  13. CLOPIDOGREL HYDROCHLORIDE (CLOPIDOGREL HYDROCHLORIDE) [Concomitant]
  14. LOSARTAN POTASSIUM (LOSARTAN POTASSIUM) [Concomitant]
  15. LEVOTHYROXINE SODIUM (LEVOTHYROXINE SODIUM) [Concomitant]

REACTIONS (3)
  - Vision blurred [None]
  - Myalgia [None]
  - Nausea [None]
